FAERS Safety Report 4366563-X (Version None)
Quarter: 2004Q2

REPORT INFORMATION
  Report Type: 
  Country: None (occurrence: None)
  Receive Date: 20040527
  Receipt Date: 20040517
  Transmission Date: 20050107
  Serious: Yes (Life-Threatening, Hospitalization, Disabling)
  Sender: FDA-Public Use
  Company Number: HK-BRISTOL-MYERS SQUIBB COMPANY-12588992

PATIENT
  Age: 44 Year
  Sex: Female

DRUGS (10)
  1. MAXIPIME [Suspect]
     Indication: PERITONITIS
     Dosage: 1 GRAM LOADING, THEN 250 MG 4 TIMES DAILY, REDUCED AGAIN BY 1/2 GIVEN FOR ANOTHER 7 DAYS
     Route: 033
     Dates: start: 20041010
  2. FOLIC ACID [Concomitant]
  3. VITAMIN B COMPLEX CAP [Concomitant]
  4. FERROUS SULFATE TAB [Concomitant]
  5. SLOW-K [Concomitant]
  6. LASIX [Concomitant]
  7. MONOPRIL [Concomitant]
  8. HEPARIN [Concomitant]
     Route: 033
  9. ADALAT [Concomitant]
  10. RECORMON [Concomitant]

REACTIONS (2)
  - CONFUSIONAL STATE [None]
  - DYSARTHRIA [None]
